FAERS Safety Report 4281134-1 (Version None)
Quarter: 2004Q1

REPORT INFORMATION
  Report Type: 
  Country: None (occurrence: None)
  Receive Date: 20040107
  Receipt Date: 20021203
  Transmission Date: 20041129
  Serious: Yes (Hospitalization)
  Sender: FDA-Public Use
  Company Number: 2002062405

PATIENT
  Age: 7 Year
  Sex: Male

DRUGS (1)
  1. PENICILLIN G PROCAINE [Suspect]
     Indication: ILL-DEFINED DISORDER

REACTIONS (1)
  - HYPERSENSITIVITY [None]
